FAERS Safety Report 25470980 (Version 1)
Quarter: 2025Q2

REPORT INFORMATION
  Report Type: Spontaneous
  Country: US (occurrence: US)
  Receive Date: 20250624
  Receipt Date: 20250624
  Transmission Date: 20250716
  Serious: No
  Sender: AUROBINDO
  Company Number: US-AUROBINDO-AUR-APL-2024-046571

PATIENT
  Age: 92 Year
  Sex: Female
  Weight: 52 kg

DRUGS (1)
  1. ZOLPIDEM TARTRATE [Suspect]
     Active Substance: ZOLPIDEM TARTRATE
     Indication: Product used for unknown indication
     Route: 065
     Dates: start: 20240909

REACTIONS (1)
  - Tinnitus [Recovering/Resolving]

NARRATIVE: CASE EVENT DATE: 20240910
